FAERS Safety Report 13442941 (Version 1)
Quarter: 2017Q2

REPORT INFORMATION
  Report Type: Spontaneous
  Country: US (occurrence: US)
  Receive Date: 20170413
  Receipt Date: 20170413
  Transmission Date: 20170830
  Serious: No
  Sender: FDA-Public Use
  Company Number: None

PATIENT
  Age: 67 Year
  Sex: Female

DRUGS (1)
  1. HARVONI [Suspect]
     Active Substance: LEDIPASVIR\SOFOSBUVIR
     Indication: CHRONIC HEPATITIS C
     Dosage: 90/400MG DAILY ORAL
     Route: 048
     Dates: start: 20170310

REACTIONS (3)
  - Suicidal ideation [None]
  - Dysarthria [None]
  - Insomnia [None]

NARRATIVE: CASE EVENT DATE: 20170412
